FAERS Safety Report 23364914 (Version 1)
Quarter: 2024Q1

REPORT INFORMATION
  Report Type: Spontaneous
  Country: US (occurrence: US)
  Receive Date: 20240104
  Receipt Date: 20240104
  Transmission Date: 20240410
  Serious: Yes (Hospitalization, Other)
  Sender: FDA-Public Use
  Company Number: US-MLMSERVICE-20231227-4615646-2

PATIENT
  Age: 66 Year
  Sex: Female

DRUGS (3)
  1. HEPARIN [Suspect]
     Active Substance: HEPARIN SODIUM
     Indication: Anticoagulant therapy
     Dosage: UFH
     Route: 042
  2. CRYOPRECIPITATED ANTIHEMOPHILIC FACTOR (HUMAN) [Concomitant]
     Active Substance: CRYOPRECIPITATED ANTIHEMOPHILIC FACTOR (HUMAN)
     Indication: Product used for unknown indication
     Dosage: 1 POOL
  3. APIXABAN [Concomitant]
     Active Substance: APIXABAN
     Indication: Prophylaxis

REACTIONS (4)
  - Cerebellar stroke [Recovered/Resolved]
  - Mediastinal haemorrhage [Recovered/Resolved]
  - Occipital lobe stroke [Recovered/Resolved]
  - Aortic thrombosis [Recovered/Resolved]
